FAERS Safety Report 23704791 (Version 3)
Quarter: 2024Q2

REPORT INFORMATION
  Report Type: Spontaneous
  Country: CA (occurrence: CA)
  Receive Date: 20240404
  Receipt Date: 20240604
  Transmission Date: 20240716
  Serious: Yes (Other)
  Sender: FDA-Public Use
  Company Number: CA-CELLTRION INC.-2020CA028095

PATIENT

DRUGS (25)
  1. INFLECTRA [Suspect]
     Active Substance: INFLIXIMAB-DYYB
     Indication: Ankylosing spondylitis
     Dosage: 5 MG/KG, 0, 2, 6 THEN EVERY 8 WEEKS
     Route: 042
     Dates: start: 20201214
  2. INFLECTRA [Suspect]
     Active Substance: INFLIXIMAB-DYYB
     Indication: Crohn^s disease
     Dosage: 5 MG/KG, 0, 2, 6 THEN EVERY 8 WEEKS
     Route: 042
     Dates: start: 20201229
  3. INFLECTRA [Suspect]
     Active Substance: INFLIXIMAB-DYYB
     Dosage: 500 MG, AFTER 11 WEEKS
     Route: 042
     Dates: start: 20210316
  4. INFLECTRA [Suspect]
     Active Substance: INFLIXIMAB-DYYB
     Dosage: 10 MG/KG, AFTER 8 WEEKS 1 DAY
     Route: 042
     Dates: start: 20210512
  5. INFLECTRA [Suspect]
     Active Substance: INFLIXIMAB-DYYB
     Dosage: 500 MG, EVERY 8 WEEKS
     Route: 042
     Dates: start: 20210707
  6. INFLECTRA [Suspect]
     Active Substance: INFLIXIMAB-DYYB
     Dosage: 500 MG, EVERY 8 WEEKS
     Route: 042
     Dates: start: 20210901
  7. INFLECTRA [Suspect]
     Active Substance: INFLIXIMAB-DYYB
     Dosage: 500 MG, AFTER 8 WEEKS 6 DAYS
     Route: 042
     Dates: start: 20211102
  8. INFLECTRA [Suspect]
     Active Substance: INFLIXIMAB-DYYB
     Dosage: 500 MG, AFTER 11 WEEKS
     Route: 042
     Dates: start: 20220118
  9. INFLECTRA [Suspect]
     Active Substance: INFLIXIMAB-DYYB
     Dosage: 10 MG/KG (1100MG), AFTER 8 WEEKS 1 DAY
     Route: 042
     Dates: start: 20220316
  10. INFLECTRA [Suspect]
     Active Substance: INFLIXIMAB-DYYB
     Dosage: 10 MG/KG (1100 MG), EVERY 8 WEEKS
     Route: 042
     Dates: start: 20220511
  11. INFLECTRA [Suspect]
     Active Substance: INFLIXIMAB-DYYB
     Dosage: 10 MG/KG (1100 MG), EVERY 8 WEEKS
     Route: 042
     Dates: start: 20220830
  12. INFLECTRA [Suspect]
     Active Substance: INFLIXIMAB-DYYB
     Dosage: 10 MG/KG (1100 MG), AFTER 6 WEEKS AND 3 DAYS
     Route: 042
     Dates: start: 20221014
  13. INFLECTRA [Suspect]
     Active Substance: INFLIXIMAB-DYYB
     Dosage: 10 MG/KG (1100 MG), EVERY 8 WEEKS
     Route: 042
     Dates: start: 20230202
  14. INFLECTRA [Suspect]
     Active Substance: INFLIXIMAB-DYYB
     Dosage: 1100MG, AFTER 9 WEEKS AND 4 DAYS
     Route: 042
     Dates: start: 20230410
  15. INFLECTRA [Suspect]
     Active Substance: INFLIXIMAB-DYYB
     Dosage: 1100MG, EVERY 8 WEEKS
     Route: 042
     Dates: start: 20230803
  16. INFLECTRA [Suspect]
     Active Substance: INFLIXIMAB-DYYB
     Dosage: 1100MG, AFTER 10 WEEKS AND 4 DAYS
     Route: 042
     Dates: start: 20231016
  17. INFLECTRA [Suspect]
     Active Substance: INFLIXIMAB-DYYB
     Dosage: 1100MG, EVERY 8 WEEKS
     Route: 042
     Dates: start: 20231212
  18. INFLECTRA [Suspect]
     Active Substance: INFLIXIMAB-DYYB
     Dosage: 1100MG, EVERY 8 WEEKS
     Route: 042
     Dates: start: 20240206
  19. INFLECTRA [Suspect]
     Active Substance: INFLIXIMAB-DYYB
     Dosage: 1100MG, EVERY 8 WEEKS
     Route: 042
     Dates: start: 20240402
  20. INFLECTRA [Suspect]
     Active Substance: INFLIXIMAB-DYYB
     Dosage: 10 MG/KG, EVERY 8 WEEK (1100MG AFTER 8 WEEKS)
     Route: 042
     Dates: start: 20240528
  21. CONCERTA [Concomitant]
     Active Substance: METHYLPHENIDATE HYDROCHLORIDE
     Dosage: 36 MG
  22. BUDESONIDE [Concomitant]
     Active Substance: BUDESONIDE
     Dosage: 15 MG
  23. NAPROXEN [Concomitant]
     Active Substance: NAPROXEN
     Dosage: UNK
  24. IRON [Concomitant]
     Active Substance: IRON
     Dosage: 11 MG
  25. TYLENOL EXTRA STRENGTH [Concomitant]
     Active Substance: ACETAMINOPHEN
     Dosage: UNK, AS NEEDED

REACTIONS (10)
  - Condition aggravated [Not Recovered/Not Resolved]
  - Drug level below therapeutic [Recovered/Resolved]
  - Faecal calprotectin increased [Not Recovered/Not Resolved]
  - Blood pressure diastolic increased [Recovered/Resolved]
  - COVID-19 [Unknown]
  - Arthralgia [Recovered/Resolved]
  - Off label use [Unknown]
  - Off label use [Unknown]
  - Intentional product use issue [Unknown]
  - Inappropriate schedule of product administration [Unknown]

NARRATIVE: CASE EVENT DATE: 20210316
